FAERS Safety Report 9748333 (Version 2)
Quarter: 2013Q4

REPORT INFORMATION
  Report Type: Spontaneous
  Country: NZ (occurrence: NZ)
  Receive Date: 20131212
  Receipt Date: 20131212
  Transmission Date: 20140711
  Serious: Yes (Disabling)
  Sender: FDA-Public Use
  Company Number: PHHY2013NZ135517

PATIENT
  Age: 74 Year
  Sex: Female

DRUGS (10)
  1. ACLASTA [Suspect]
     Indication: OSTEOPOROSIS
     Dosage: 5 MG, UNK
     Route: 042
     Dates: start: 20131017
  2. OVESTIN [Concomitant]
     Dosage: 1MG/1G, AS DIRECTED NOCTE FOR 1ST WEEK THEN 2 TIMES A WEEK THERE AFTER
     Dates: start: 20131114
  3. LORAZEPAM [Concomitant]
     Dosage: 1 MG, NOCTE TO ASSIST SLEEP
     Dates: start: 20131021
  4. AROPAX [Concomitant]
     Dosage: 1 DF, QD
     Dates: start: 20131021
  5. PARACODE [Concomitant]
     Indication: PAIN
     Dosage: 2 DF, TID
     Dates: start: 20131010
  6. CALCIUM CARBONATE [Concomitant]
     Dosage: 1 DF, MANE
     Dates: start: 20131010
  7. NORTRIPTYLINE [Concomitant]
     Dosage: 1 DF, NOCTE
     Dates: start: 20130919
  8. LOSEC//OMEPRAZOLE MAGNESIUM [Concomitant]
     Dosage: 1 DF, MANE
     Dates: start: 20130919
  9. CANDESARTAN CILEXETIL [Concomitant]
     Dosage: 1 DF, MANE NEW BLOOD PRESSURE PILL
     Dates: start: 20130626
  10. CALCIFEROL [Concomitant]
     Dosage: 1 DF, ONCE DAILY, ONCE PER WEEK FOR 4 WEEKS THEN EVERY MONTH FOR LIFE
     Dates: start: 20130423

REACTIONS (43)
  - Carpal tunnel syndrome [Unknown]
  - Hypoaesthesia [Unknown]
  - Joint swelling [Unknown]
  - Joint warmth [Unknown]
  - Burning sensation [Unknown]
  - Pain [Recovering/Resolving]
  - Sensory loss [Unknown]
  - Viral infection [Unknown]
  - Sinus congestion [Unknown]
  - Tonsillitis [Unknown]
  - Aphonia [Unknown]
  - Dysphonia [Unknown]
  - Nasal congestion [Unknown]
  - Lymph node palpable [Unknown]
  - Lymph node pain [Unknown]
  - Oropharyngeal pain [Unknown]
  - Cough [Unknown]
  - Productive cough [Unknown]
  - Facial pain [Unknown]
  - Feeling abnormal [Unknown]
  - Blood creatine phosphokinase increased [Unknown]
  - Protein total decreased [Unknown]
  - Blood creatinine decreased [Unknown]
  - Red blood cell sedimentation rate increased [Unknown]
  - Monocyte count increased [Unknown]
  - Polymyositis [Unknown]
  - Joint effusion [Unknown]
  - Agitation [Unknown]
  - Sensation of foreign body [Unknown]
  - Osteoarthritis [Unknown]
  - Malaise [Recovering/Resolving]
  - Vomiting [Recovered/Resolved]
  - Myalgia [Recovering/Resolving]
  - Musculoskeletal stiffness [Unknown]
  - C-reactive protein increased [Unknown]
  - Musculoskeletal pain [Unknown]
  - Neck pain [Unknown]
  - Insomnia [Unknown]
  - Fatigue [Unknown]
  - Influenza [Unknown]
  - Pyrexia [Unknown]
  - Arthralgia [Unknown]
  - Headache [Recovered/Resolved]
